FAERS Safety Report 5044802-X (Version None)
Quarter: 2006Q2

REPORT INFORMATION
  Report Type: 
  Country: None (occurrence: None)
  Receive Date: 20060601
  Receipt Date: 20060322
  Transmission Date: 20061013
  Serious: No
  Sender: FDA-Public Use
  Company Number: 2006-BP-02359BP

PATIENT
  Age: 75 Year
  Sex: Female

DRUGS (7)
  1. SPIRIVA [Suspect]
     Indication: CHRONIC OBSTRUCTIVE PULMONARY DISEASE
     Dosage: 18 MCG (18 MCG 1 IN 2 D) IH
     Route: 055
  2. SPIRIVA [Suspect]
     Indication: DYSPNOEA
  3. NEXIUM [Concomitant]
  4. TRIAMTRN/HCTZ (DYAZIDE) [Concomitant]
  5. LIPITOR [Concomitant]
  6. FLONASE [Concomitant]
  7. ASPIRIN [Concomitant]

REACTIONS (1)
  - AGEUSIA [None]
